FAERS Safety Report 6127907-1 (Version None)
Quarter: 2009Q1

REPORT INFORMATION
  Report Type: 
  Country: None (occurrence: None)
  Receive Date: 20090319
  Receipt Date: 20090309
  Transmission Date: 20090719
  Serious: Yes (Hospitalization)
  Sender: FDA-Public Use
  Company Number: 6049590

PATIENT
  Age: 66 Year
  Sex: Female

DRUGS (11)
  1. LEVOTHYROXINE SODIUM [Suspect]
     Indication: HYPOTHYROIDISM
  2. TRILEPTAL [Suspect]
     Indication: EPILEPSY
     Dosage: ORAL
     Route: 048
     Dates: start: 20060101, end: 20090119
  3. STABLON (TIANEPTINE) [Suspect]
     Indication: DRUG USE FOR UNKNOWN INDICATION
     Dosage: ORAL
     Route: 048
     Dates: start: 20060101, end: 20081208
  4. NEXIUM [Suspect]
     Indication: DRUG USE FOR UNKNOWN INDICATION
     Dates: start: 20060101, end: 20081208
  5. SPASMOPRIV (FENOVERINE) [Suspect]
     Indication: DRUG USE FOR UNKNOWN INDICATION
     Dosage: ORAL
     Route: 048
     Dates: start: 20060101, end: 20081208
  6. SANMIGRAN (PIZOTIFEN MALEATE) [Suspect]
     Indication: MIGRAINE
     Dates: start: 20060101, end: 20081208
  7. ATARAX [Concomitant]
  8. RAMIPRIL [Concomitant]
  9. PROPRANOLOL [Concomitant]
  10. XANAX [Concomitant]
  11. IMOVANE (ZOPICLONE) [Concomitant]

REACTIONS (1)
  - CHOLESTASIS [None]
